FAERS Safety Report 20386504 (Version 1)
Quarter: 2022Q1

REPORT INFORMATION
  Report Type: Spontaneous
  Country: US (occurrence: US)
  Receive Date: 20220127
  Receipt Date: 20220127
  Transmission Date: 20220424
  Serious: No
  Sender: FDA-Public Use
  Company Number: US-ALLERGAN-2143225US

PATIENT
  Sex: Female

DRUGS (1)
  1. BOTOX [Suspect]
     Active Substance: ONABOTULINUMTOXINA
     Indication: Migraine
     Dosage: UNK, SINGLE

REACTIONS (9)
  - Eye irritation [Unknown]
  - Pain [Unknown]
  - Eyelid ptosis [Unknown]
  - Injection site swelling [Unknown]
  - Injection site pain [Unknown]
  - Headache [Unknown]
  - Vision blurred [Unknown]
  - Injection site nodule [Not Recovered/Not Resolved]
  - Rash [Not Recovered/Not Resolved]
